FAERS Safety Report 8796903 (Version 1)
Quarter: 2012Q4

REPORT INFORMATION
  Report Type: 
  Country: FI (occurrence: FI)
  Receive Date: 20120920
  Receipt Date: 20120920
  Transmission Date: 20130627
  Serious: Yes (Other)
  Sender: FDA-Public Use
  Company Number: FI-BRISTOL-MYERS SQUIBB COMPANY-16943904

PATIENT

DRUGS (1)
  1. BICNU [Suspect]

REACTIONS (1)
  - Cardiac disorder [Unknown]
